FAERS Safety Report 8344976-9 (Version None)
Quarter: 2012Q2

REPORT INFORMATION
  Report Type: 
  Country: None (occurrence: None)
  Receive Date: 20120508
  Receipt Date: 20120424
  Transmission Date: 20120825
  Serious: Yes (Other)
  Sender: FDA-Public Use
  Company Number: US-ELI_LILLY_AND_COMPANY-US201204008983

PATIENT
  Age: 49 Year
  Sex: Female

DRUGS (5)
  1. MELOXICAM [Concomitant]
  2. CYMBALTA [Suspect]
     Dosage: 60 MG, QD
     Dates: start: 20120303
  3. CYMBALTA [Suspect]
     Dosage: UNK, UNKNOWN
  4. CYMBALTA [Suspect]
     Indication: BACK PAIN
     Dosage: 30 MG, QD
     Dates: start: 20111101, end: 20111201
  5. CYMBALTA [Suspect]
     Dosage: 30 MG, QD
     Dates: start: 20120215, end: 20120302

REACTIONS (19)
  - NAUSEA [None]
  - WEIGHT DECREASED [None]
  - VOMITING [None]
  - NERVOUSNESS [None]
  - INSOMNIA [None]
  - WRONG TECHNIQUE IN DRUG USAGE PROCESS [None]
  - SUICIDAL IDEATION [None]
  - DRY MOUTH [None]
  - CRYING [None]
  - SKIN EXFOLIATION [None]
  - DYSPHAGIA [None]
  - DECREASED APPETITE [None]
  - DISTURBANCE IN ATTENTION [None]
  - OROPHARYNGEAL BLISTERING [None]
  - LIP BLISTER [None]
  - MEMORY IMPAIRMENT [None]
  - HYPOAESTHESIA [None]
  - DEHYDRATION [None]
  - HUNGER [None]
